FAERS Safety Report 18232514 (Version 1)
Quarter: 2020Q3

REPORT INFORMATION
  Report Type: Spontaneous
  Country: US (occurrence: US)
  Receive Date: 20200904
  Receipt Date: 20200904
  Transmission Date: 20201103
  Serious: No
  Sender: FDA-Public Use
  Company Number: US-PFIZER INC-2020342795

PATIENT
  Age: 57 Year
  Sex: Female
  Weight: 53.52 kg

DRUGS (1)
  1. IBRANCE [Suspect]
     Active Substance: PALBOCICLIB
     Indication: BREAST CANCER FEMALE
     Dosage: 125 MG, CYCLIC (1 DAILY FOR 21 DAYS)
     Route: 048
     Dates: start: 201908

REACTIONS (4)
  - Gingival disorder [Unknown]
  - Stress [Unknown]
  - Muscle spasms [Unknown]
  - Weight gain poor [Unknown]
